FAERS Safety Report 5358898-9 (Version None)
Quarter: 2007Q2

REPORT INFORMATION
  Report Type: 
  Country: None (occurrence: None)
  Receive Date: 20070615
  Receipt Date: 20070612
  Transmission Date: 20071010
  Serious: Yes (Other)
  Sender: FDA-Public Use
  Company Number: A0656636A

PATIENT
  Age: 58 Year
  Sex: Male

DRUGS (5)
  1. KIVEXA [Suspect]
     Indication: DRUG USE FOR UNKNOWN INDICATION
     Dosage: 1TAB TWICE PER DAY
     Route: 048
  2. KALETRA [Concomitant]
  3. LIPIDIL [Concomitant]
  4. PENICILLIN [Concomitant]
  5. TUMS [Concomitant]

REACTIONS (2)
  - ACCIDENTAL OVERDOSE [None]
  - ARTHRALGIA [None]
